FAERS Safety Report 11964557 (Version 4)
Quarter: 2016Q1

REPORT INFORMATION
  Report Type: Report from Study
  Country: GB (occurrence: GB)
  Receive Date: 20160127
  Receipt Date: 20160210
  Transmission Date: 20160526
  Serious: Yes (Death, Life-Threatening, Hospitalization)
  Sender: FDA-Public Use
  Company Number: GB-TEVA-625503ACC

PATIENT
  Age: 71 Year
  Sex: Male
  Weight: 50 kg

DRUGS (21)
  1. PARACETAMOL [Concomitant]
     Active Substance: ACETAMINOPHEN
     Indication: CHRONIC LYMPHOCYTIC LEUKAEMIA
     Dosage: PER PROTOCOL
     Route: 048
     Dates: start: 20151123, end: 20160103
  2. ACICLOVIR [Concomitant]
     Active Substance: ACYCLOVIR
     Indication: PRODUCT USED FOR UNKNOWN INDICATION
     Route: 065
  3. OFATUMUMAB [Suspect]
     Active Substance: OFATUMUMAB
     Indication: CHRONIC LYMPHOCYTIC LEUKAEMIA
     Dosage: PER PROTOCOL
     Route: 042
     Dates: start: 20151123, end: 20151130
  4. METOCLOPRAMIDE. [Concomitant]
     Active Substance: METOCLOPRAMIDE
     Indication: CHRONIC LYMPHOCYTIC LEUKAEMIA
     Dosage: PER PROTOCOL
     Route: 048
     Dates: start: 20151123, end: 20151227
  5. SIMVASTATIN. [Concomitant]
     Active Substance: SIMVASTATIN
     Indication: LIPIDS ABNORMAL
     Dosage: NOCTE (EVERY NIGHT)
     Route: 048
     Dates: start: 20050525
  6. FUROSEMIDE. [Concomitant]
     Active Substance: FUROSEMIDE
     Indication: PULMONARY OEDEMA
     Route: 042
     Dates: start: 20150102, end: 20160111
  7. CHLORPHENIRAMINE                   /00072501/ [Concomitant]
     Active Substance: CHLORPHENIRAMINE
     Indication: CHRONIC LYMPHOCYTIC LEUKAEMIA
     Dosage: PER PROTOCOL
     Route: 042
     Dates: start: 20151123, end: 20151130
  8. ALLOPURINOL. [Concomitant]
     Active Substance: ALLOPURINOL
     Indication: CHRONIC LYMPHOCYTIC LEUKAEMIA
     Dosage: PER PROTOCOL
     Route: 048
     Dates: start: 20151125, end: 20151201
  9. COTRIMOXAZOLE [Concomitant]
     Active Substance: SULFAMETHOXAZOLE\TRIMETHOPRIM
     Indication: CHRONIC LYMPHOCYTIC LEUKAEMIA
     Dosage: PER PROTOCOL
     Route: 048
     Dates: start: 20151123, end: 20151227
  10. HALOPERIDOL. [Concomitant]
     Active Substance: HALOPERIDOL
     Indication: AGITATION
     Route: 042
     Dates: start: 20150107, end: 20160111
  11. DIGOXIN. [Concomitant]
     Active Substance: DIGOXIN
     Indication: ATRIAL FIBRILLATION
     Dosage: 125 MILLIGRAM DAILY;
     Route: 048
     Dates: start: 20150103, end: 20160111
  12. OMEPRAZOLE. [Concomitant]
     Active Substance: OMEPRAZOLE
     Route: 048
     Dates: start: 20160108
  13. BENDAMUSTINE HYDROCHLORIDE [Suspect]
     Active Substance: BENDAMUSTINE HYDROCHLORIDE
     Indication: CHRONIC LYMPHOCYTIC LEUKAEMIA
     Dosage: PER PROTOCOL
     Route: 042
     Dates: start: 20151124, end: 20151125
  14. HYDROCORTISONE. [Concomitant]
     Active Substance: HYDROCORTISONE
     Indication: CHRONIC LYMPHOCYTIC LEUKAEMIA
     Dosage: PER PROTOCOL
     Route: 042
     Dates: start: 20151123, end: 20151130
  15. IDELALISIB [Suspect]
     Active Substance: IDELALISIB
     Indication: CHRONIC LYMPHOCYTIC LEUKAEMIA
     Dosage: 150 MILLIGRAM DAILY;
     Route: 048
     Dates: start: 20151123, end: 20151227
  16. G-CSF [Concomitant]
     Active Substance: GRANULOCYTE COLONY-STIMULATING FACTOR NOS
     Indication: CHRONIC LYMPHOCYTIC LEUKAEMIA
  17. G-CSF [Concomitant]
     Active Substance: GRANULOCYTE COLONY-STIMULATING FACTOR NOS
     Indication: NEUTROPENIA
     Dosage: PER PROTOCOL
     Route: 058
     Dates: start: 20151228, end: 20160111
  18. BISOPROLOL [Concomitant]
     Active Substance: BISOPROLOL
     Indication: ATRIAL FLUTTER
     Dosage: 2.5 MILLIGRAM DAILY;
     Route: 048
     Dates: start: 20130429
  19. FRAGMIN [Concomitant]
     Active Substance: DALTEPARIN SODIUM
     Indication: ANTICOAGULANT THERAPY
     Dosage: 10000 IU (INTERNATIONAL UNIT) DAILY;
     Route: 058
     Dates: start: 20151123, end: 20160103
  20. DIGOXIN. [Concomitant]
     Active Substance: DIGOXIN
     Route: 042
     Dates: start: 20160102, end: 20160103
  21. OMEPRAZOLE. [Concomitant]
     Active Substance: OMEPRAZOLE
     Indication: GASTROOESOPHAGEAL REFLUX DISEASE
     Dosage: 20 MILLIGRAM DAILY;
     Route: 048
     Dates: start: 20150108, end: 20160111

REACTIONS (7)
  - Febrile neutropenia [Not Recovered/Not Resolved]
  - Neutropenic sepsis [Fatal]
  - Pneumonia [Fatal]
  - Multiple organ dysfunction syndrome [Fatal]
  - Oesophageal infection [Fatal]
  - Neutropenia [Not Recovered/Not Resolved]
  - Pancytopenia [Fatal]

NARRATIVE: CASE EVENT DATE: 20151216
